FAERS Safety Report 5851429-6 (Version None)
Quarter: 2008Q3

REPORT INFORMATION
  Report Type: 
  Country: None (occurrence: None)
  Receive Date: 20080820
  Receipt Date: 20080818
  Transmission Date: 20090109
  Serious: Yes (Death, Other)
  Sender: FDA-Public Use
  Company Number: US-BRISTOL-MYERS SQUIBB COMPANY-14305684

PATIENT
  Age: 26 Year
  Sex: Male

DRUGS (5)
  1. CYCLOPHOSPHAMIDE [Suspect]
     Indication: NON-HODGKIN'S LYMPHOMA
  2. VINCRISTINE SULFATE [Suspect]
     Indication: NON-HODGKIN'S LYMPHOMA
  3. DOXORUBICIN HCL [Suspect]
     Indication: NON-HODGKIN'S LYMPHOMA
  4. PREDNISONE TAB [Suspect]
     Indication: NON-HODGKIN'S LYMPHOMA
  5. RADIATION THERAPY [Suspect]
     Indication: NON-HODGKIN'S LYMPHOMA
     Dosage: 28 FRACTIONS OF 180CGY FOR A TOTAL RADIATION OF 5040CGY.

REACTIONS (3)
  - FEBRILE NEUTROPENIA [None]
  - LEUKOENCEPHALOPATHY [None]
  - NAUSEA [None]
